FAERS Safety Report 16588541 (Version 11)
Quarter: 2022Q1

REPORT INFORMATION
  Report Type: Spontaneous
  Country: GB (occurrence: GB)
  Receive Date: 20190718
  Receipt Date: 20220106
  Transmission Date: 20220424
  Serious: Yes (Congenital Anomaly, Other)
  Sender: FDA-Public Use
  Company Number: GB-MHRA-EYC 00202541

PATIENT
  Sex: Male

DRUGS (7)
  1. EMTRICITABINE\TENOFOVIR [Suspect]
     Active Substance: EMTRICITABINE\TENOFOVIR
     Indication: HIV infection
     Dosage: UNK
     Route: 064
  2. NEVIRAPINE EXTENDED RELEASE [Suspect]
     Active Substance: NEVIRAPINE
     Indication: HIV infection
     Dosage: 400 MILLIGRAM, ONCE A DAY
     Route: 064
     Dates: start: 2011
  3. NEVIRAPINE EXTENDED RELEASE [Suspect]
     Active Substance: NEVIRAPINE
     Indication: Foetal exposure during pregnancy
  4. TRUVADA [Suspect]
     Active Substance: EMTRICITABINE\TENOFOVIR DISOPROXIL FUMARATE
     Indication: HIV infection
     Dosage: UNK
     Route: 064
     Dates: start: 2011
  5. TRUVADA [Suspect]
     Active Substance: EMTRICITABINE\TENOFOVIR DISOPROXIL FUMARATE
     Indication: Foetal exposure during pregnancy
     Dosage: 1 DOSAGE FORM
     Route: 064
  6. VIRAMUNE [Suspect]
     Active Substance: NEVIRAPINE
     Indication: HIV infection
     Dosage: 400 MILLIGRAM, ONCE A DAY
     Route: 064
  7. VIRAMUNE [Suspect]
     Active Substance: NEVIRAPINE
     Indication: Foetal exposure during pregnancy

REACTIONS (4)
  - Speech disorder developmental [Unknown]
  - Developmental delay [Unknown]
  - Speech disorder [Unknown]
  - Foetal exposure during pregnancy [Recovered/Resolved]

NARRATIVE: CASE EVENT DATE: 20181213
